FAERS Safety Report 23971738 (Version 1)
Quarter: 2024Q2

REPORT INFORMATION
  Report Type: Spontaneous
  Country: US (occurrence: US)
  Receive Date: 20240613
  Receipt Date: 20240613
  Transmission Date: 20240715
  Serious: Yes (Other)
  Sender: FDA-Public Use
  Company Number: US-002147023-NVSC2024US120625

PATIENT

DRUGS (2)
  1. KESIMPTA [Suspect]
     Active Substance: OFATUMUMAB
     Indication: Product used for unknown indication
     Dosage: UNK
     Route: 065
  2. ACETAMINOPHEN [Suspect]
     Active Substance: ACETAMINOPHEN
     Indication: Product used for unknown indication
     Dosage: UNK
     Route: 065

REACTIONS (38)
  - Optic neuritis [Unknown]
  - Dizziness [Unknown]
  - Pain in extremity [Unknown]
  - Disease progression [Unknown]
  - Multiple sclerosis [Unknown]
  - Fatigue [Unknown]
  - Somnolence [Unknown]
  - Illness [Unknown]
  - Alopecia [Unknown]
  - Acne [Unknown]
  - Balance disorder [Unknown]
  - Hypoaesthesia [Recovering/Resolving]
  - Weight decreased [Unknown]
  - Movement disorder [Unknown]
  - Gastrooesophageal reflux disease [Unknown]
  - Pain [Unknown]
  - Brain fog [Unknown]
  - Anxiety [Unknown]
  - Gastroenteritis viral [Unknown]
  - COVID-19 [Unknown]
  - Endometriosis [Unknown]
  - Pelvic floor dysfunction [Unknown]
  - Eye pain [Unknown]
  - Burning sensation [Unknown]
  - Memory impairment [Unknown]
  - Vomiting [Unknown]
  - Speech disorder [Unknown]
  - Gastrointestinal disorder [Unknown]
  - Eczema [Unknown]
  - Nasopharyngitis [Unknown]
  - Upper respiratory tract infection [Unknown]
  - Pruritus [Unknown]
  - Chills [Recovered/Resolved]
  - Pyrexia [Recovered/Resolved]
  - Hypersensitivity [Recovered/Resolved]
  - Influenza [Unknown]
  - Headache [Unknown]
  - Injection site reaction [Unknown]
